FAERS Safety Report 8218527 (Version 2)
Quarter: 2014Q2

REPORT INFORMATION
  Report Type: Spontaneous
  Country: CA (occurrence: CA)
  Receive Date: 20111101
  Receipt Date: 20140625
  Transmission Date: 20141212
  Serious: Yes (Hospitalization, Other)
  Sender: FDA-Public Use
  Company Number: CA-ELI_LILLY_AND_COMPANY-CA201110004867

PATIENT
  Age: 25 Year
  Sex: Female

DRUGS (14)
  1. ZYPREXA ZYDIS [Suspect]
     Indication: SCHIZOPHRENIA
     Dosage: 40 MG, QD
     Dates: start: 20030722
  2. ZYPREXA ZYDIS [Suspect]
     Dosage: 50 MG, QD
  3. ZYPREXA ZYDIS [Suspect]
     Dosage: 30 MG, QD
  4. ZYPREXA ZYDIS [Suspect]
     Dosage: 20 MG, QD
  5. ZELDOX                             /01487002/ [Suspect]
     Indication: PRODUCT USED FOR UNKNOWN INDICATION
     Route: 065
  6. PROZAC [Concomitant]
  7. SEROQUEL [Concomitant]
  8. RISPERDAL [Concomitant]
  9. PERINDOPRIL [Concomitant]
  10. ABILIFY [Concomitant]
  11. WELLBUTRIN [Concomitant]
  12. DIVALPROEX [Concomitant]
  13. IMOVANE [Concomitant]
  14. METHOTRIMEPRAZINE [Concomitant]

REACTIONS (12)
  - Diabetic ketoacidosis [Recovered/Resolved]
  - Type 1 diabetes mellitus [Recovered/Resolved]
  - Culture urine positive [Unknown]
  - Alanine aminotransferase increased [Recovered/Resolved]
  - Aspartate aminotransferase increased [Recovered/Resolved]
  - Hepatic steatosis [Unknown]
  - Hepatomegaly [Recovered/Resolved]
  - Electrocardiogram QT prolonged [Unknown]
  - Haemorrhagic ovarian cyst [Unknown]
  - Mean cell haemoglobin increased [Unknown]
  - Weight increased [Unknown]
  - Prescribed overdose [Unknown]
